FAERS Safety Report 10732282 (Version 2)
Quarter: 2015Q1

REPORT INFORMATION
  Report Type: Report from Study
  Country: DE (occurrence: DE)
  Receive Date: 20150123
  Receipt Date: 20150317
  Transmission Date: 20150721
  Serious: Yes (Disabling)
  Sender: FDA-Public Use
  Company Number: DE-ROCHE-1525102

PATIENT
  Sex: Female
  Weight: 65.06 kg

DRUGS (1)
  1. RANIBIZUMAB [Suspect]
     Active Substance: RANIBIZUMAB
     Indication: RETINAL NEOVASCULARISATION
     Dosage: IN THE RIGHT EYE
     Route: 050
     Dates: start: 20100211

REACTIONS (1)
  - Drug ineffective [Unknown]
